FAERS Safety Report 10902037 (Version 1)
Quarter: 2015Q1

REPORT INFORMATION
  Report Type: Spontaneous
  Country: VN (occurrence: VN)
  Receive Date: 20150310
  Receipt Date: 20150310
  Transmission Date: 20150721
  Serious: Yes (Hospitalization)
  Sender: FDA-Public Use
  Company Number: VN-009507513-1503VNM001729

PATIENT
  Age: 64 Year
  Sex: Female
  Weight: 54 kg

DRUGS (1)
  1. FOSAMAX PLUS D [Suspect]
     Active Substance: ALENDRONATE SODIUM\CHOLECALCIFEROL
     Dosage: 1 DF, QW
     Route: 048
     Dates: start: 20150107

REACTIONS (3)
  - Intervertebral disc protrusion [Recovering/Resolving]
  - Tremor [Recovering/Resolving]
  - Arthralgia [Recovering/Resolving]
